FAERS Safety Report 18390410 (Version 1)
Quarter: 2020Q4

REPORT INFORMATION
  Report Type: Spontaneous
  Country: BR (occurrence: BR)
  Receive Date: 20201016
  Receipt Date: 20201016
  Transmission Date: 20210114
  Serious: Yes (Hospitalization, Other)
  Sender: FDA-Public Use
  Company Number: BR-ASTRAZENECA-2020SF16467

PATIENT
  Age: 63 Year
  Sex: Female

DRUGS (2)
  1. NOVALDEX D [Suspect]
     Active Substance: TAMOXIFEN CITRATE
     Indication: BREAST CANCER
     Route: 048
     Dates: start: 201911
  2. NEXIUM [Suspect]
     Active Substance: ESOMEPRAZOLE MAGNESIUM
     Indication: ABDOMINAL DISCOMFORT
     Route: 048

REACTIONS (5)
  - Breast cancer female [Unknown]
  - Hot flush [Not Recovered/Not Resolved]
  - Weight increased [Not Recovered/Not Resolved]
  - Blood glucose abnormal [Unknown]
  - Fluid retention [Not Recovered/Not Resolved]

NARRATIVE: CASE EVENT DATE: 2019
